FAERS Safety Report 14409282 (Version 2)
Quarter: 2018Q1

REPORT INFORMATION
  Report Type: Report from Study
  Country: US (occurrence: US)
  Receive Date: 20180119
  Receipt Date: 20180131
  Transmission Date: 20180509
  Serious: Yes (Other)
  Sender: FDA-Public Use
  Company Number: US-ASTRAZENECA-2017SF29371

PATIENT
  Sex: Male
  Weight: 87.5 kg

DRUGS (14)
  1. LISINOPRIL. [Suspect]
     Active Substance: LISINOPRIL
     Indication: BLOOD PRESSURE ABNORMAL
     Route: 048
     Dates: start: 2014
  2. METOPROLOL TARTRATE. [Suspect]
     Active Substance: METOPROLOL TARTRATE
     Indication: BLOOD PRESSURE ABNORMAL
     Route: 048
     Dates: start: 2014
  3. CRESTOR [Suspect]
     Active Substance: ROSUVASTATIN CALCIUM
     Route: 048
     Dates: start: 2015
  4. CRESTOR [Suspect]
     Active Substance: ROSUVASTATIN CALCIUM
     Dosage: GENERIC 40 MG DAILY
     Route: 048
     Dates: start: 2015
  5. BRILINTA [Suspect]
     Active Substance: TICAGRELOR
     Indication: MYOCARDIAL INFARCTION
     Route: 048
     Dates: start: 20170102, end: 20180110
  6. ZETIA [Concomitant]
     Active Substance: EZETIMIBE
     Indication: LIPIDS ABNORMAL
     Route: 048
  7. VENLAFAXINE [Concomitant]
     Active Substance: VENLAFAXINE HYDROCHLORIDE
     Dosage: 37.5 MG ORAL TABLET
     Route: 048
  8. OMEPRAZOLE. [Suspect]
     Active Substance: OMEPRAZOLE
     Route: 048
  9. BABY ASPIRIN [Concomitant]
     Active Substance: ASPIRIN
     Indication: ADJUVANT THERAPY
     Route: 048
  10. BRILINTA [Suspect]
     Active Substance: TICAGRELOR
     Indication: STENT PLACEMENT
     Route: 048
     Dates: start: 20170102, end: 20180110
  11. BRILINTA [Suspect]
     Active Substance: TICAGRELOR
     Indication: STENT PLACEMENT
     Route: 048
     Dates: start: 20170102, end: 20180110
  12. AMLODIPIN [Concomitant]
     Active Substance: AMLODIPINE BESYLATE
     Dosage: 5 MG ORAL TABLET
     Route: 048
  13. LEVOCETIRIZINE [Concomitant]
     Active Substance: LEVOCETIRIZINE
     Dosage: 50 MEG (0.05 MG) ORAL
     Route: 048
  14. NITROGLYCERIN. [Concomitant]
     Active Substance: NITROGLYCERIN
     Dosage: 0.4 MG SUBLINGUAL TABLET,

REACTIONS (26)
  - Haemorrhage [Unknown]
  - Scratch [Unknown]
  - Ventricular hypokinesia [Unknown]
  - Fatigue [Unknown]
  - Blood pressure decreased [Unknown]
  - Scab [Unknown]
  - Epistaxis [Unknown]
  - Sinus headache [Not Recovered/Not Resolved]
  - Haemorrhagic diathesis [Unknown]
  - Pharyngeal haemorrhage [Unknown]
  - Paranasal sinus haemorrhage [Unknown]
  - Skin lesion [Unknown]
  - Cervical spinal stenosis [Unknown]
  - Nausea [Unknown]
  - Myocardial infarction [Unknown]
  - Sinus bradycardia [Unknown]
  - Bradyphrenia [Unknown]
  - Depression [Unknown]
  - Impaired healing [Unknown]
  - Myocardial ischaemia [Unknown]
  - Lung infiltration [Unknown]
  - Atelectasis [Unknown]
  - Blood blister [Unknown]
  - Skin discolouration [Unknown]
  - Hypothyroidism [Unknown]
  - Depressed mood [Unknown]
